FAERS Safety Report 5092513-7 (Version None)
Quarter: 2006Q3

REPORT INFORMATION
  Report Type: 
  Country: None (occurrence: None)
  Receive Date: 20060828
  Receipt Date: 20060818
  Transmission Date: 20061208
  Serious: Yes (Other)
  Sender: FDA-Public Use
  Company Number: 2006100688

PATIENT
  Age: 56 Year
  Sex: Male

DRUGS (5)
  1. ZOLOFT [Suspect]
     Indication: ANXIETY
     Dosage: 25 MG (25 MG, 1 IN 1 D);
     Dates: start: 20050101, end: 20060101
  2. ZOLOFT [Suspect]
     Indication: PANIC ATTACK
     Dosage: 25 MG (25 MG, 1 IN 1 D);
     Dates: start: 20050101, end: 20060101
  3. LYRICA [Suspect]
     Indication: NEURALGIA
     Dosage: 200 MG (100 MG, 2 IN 1 D);
     Dates: start: 20051101
  4. MORPHINE [Suspect]
     Indication: DRUG USE FOR UNKNOWN INDICATION
  5. DARVON [Suspect]
     Indication: DRUG USE FOR UNKNOWN INDICATION

REACTIONS (13)
  - ABDOMINAL PAIN UPPER [None]
  - DIARRHOEA [None]
  - DIPLOPIA [None]
  - DIZZINESS [None]
  - DRUG WITHDRAWAL SYNDROME [None]
  - INFLUENZA LIKE ILLNESS [None]
  - NAUSEA [None]
  - NEURALGIA [None]
  - SOMNOLENCE [None]
  - THINKING ABNORMAL [None]
  - VISION BLURRED [None]
  - WEIGHT INCREASED [None]
  - WRONG TECHNIQUE IN DRUG USAGE PROCESS [None]
